FAERS Safety Report 9603101 (Version 1)
Quarter: 2013Q4

REPORT INFORMATION
  Report Type: Spontaneous
  Country: GB (occurrence: GB)
  Receive Date: 20131007
  Receipt Date: 20131007
  Transmission Date: 20140711
  Serious: Yes (Life-Threatening, Hospitalization, Disabling)
  Sender: FDA-Public Use
  Company Number: GB-GLAXOSMITHKLINE-B0926288A

PATIENT
  Age: 39 Year
  Sex: Male
  Weight: 95.25 kg

DRUGS (3)
  1. SEROXAT [Suspect]
     Route: 048
     Dates: start: 19890514
  2. SEROXAT [Suspect]
     Route: 048
     Dates: end: 20130910
  3. DIAZEPAM [Concomitant]

REACTIONS (9)
  - Dizziness postural [Not Recovered/Not Resolved]
  - Paraesthesia [Not Recovered/Not Resolved]
  - Confusional state [Not Recovered/Not Resolved]
  - Nausea [Not Recovered/Not Resolved]
  - Agitation [Not Recovered/Not Resolved]
  - Balance disorder [Not Recovered/Not Resolved]
  - Paraesthesia [Not Recovered/Not Resolved]
  - Drug ineffective [Unknown]
  - Withdrawal syndrome [Unknown]
